FAERS Safety Report 4589509-8 (Version None)
Quarter: 2005Q1

REPORT INFORMATION
  Report Type: 
  Country: None (occurrence: None)
  Receive Date: 20050216
  Receipt Date: 20050207
  Transmission Date: 20050727
  Serious: Yes (Other)
  Sender: FDA-Public Use
  Company Number: 2004114932

PATIENT
  Age: 15 Year
  Sex: Male

DRUGS (5)
  1. GENOTROPIN [Suspect]
     Indication: HYPOPITUITARISM
     Dosage: (14 MG, WEEKLY (7 INJECTION/WEEK)), SUBCUTANEOUS
     Route: 058
     Dates: start: 20031230, end: 20040112
  2. GENOTROPIN [Suspect]
     Indication: HYPOPITUITARISM
     Dosage: (14 MG, WEEKLY (7 INJECTION/WEEK)), SUBCUTANEOUS
     Route: 058
     Dates: start: 20040201, end: 20040717
  3. LEVOTHYROXINE SODIUM [Concomitant]
  4. DESMOPRESSIN (DESMOPRESSIN) [Concomitant]
  5. HYDROCORTISONE ACETATE (HYDROCORTISONE ACETATE) [Concomitant]

REACTIONS (3)
  - HEADACHE [None]
  - JUVENILE PILOCYTIC ASTROCYTOMA [None]
  - NEOPLASM PROGRESSION [None]
